FAERS Safety Report 16162626 (Version 1)
Quarter: 2019Q2

REPORT INFORMATION
  Report Type: Spontaneous
  Country: US (occurrence: US)
  Receive Date: 20190302
  Receipt Date: 20190302
  Transmission Date: 20190711
  Serious: No
  Sender: FDA-Public Use
  Company Number: None

PATIENT
  Age: 69 Year
  Sex: Female

DRUGS (4)
  1. CYCLOSPORINE CAP 25MG  MOD [Suspect]
     Active Substance: CYCLOSPORINE
     Route: 048
     Dates: start: 20180420
  2. DILTIAZEM. [Concomitant]
     Active Substance: DILTIAZEM
  3. CRESTOR [Concomitant]
     Active Substance: ROSUVASTATIN CALCIUM
  4. ROSUVASTATIN. [Concomitant]
     Active Substance: ROSUVASTATIN

REACTIONS (2)
  - Swelling [None]
  - Product substitution issue [None]

NARRATIVE: CASE EVENT DATE: 20190302
